FAERS Safety Report 24571270 (Version 1)
Quarter: 2024Q4

REPORT INFORMATION
  Report Type: Spontaneous
  Country: FR (occurrence: FR)
  Receive Date: 20241101
  Receipt Date: 20241101
  Transmission Date: 20250114
  Serious: Yes (Hospitalization)
  Sender: BAXTER
  Company Number: None

PATIENT
  Age: 61 Year
  Sex: Male
  Weight: 105 kg

DRUGS (20)
  1. PROPOFOL [Suspect]
     Active Substance: PROPOFOL
     Indication: Anaesthesia
     Dosage: (DURATION: 16 DAYS) DOSAGE TEXT: NOT SPECIFIED
     Route: 042
     Dates: start: 20240607, end: 20240623
  2. REMIFENTANIL [Suspect]
     Active Substance: REMIFENTANIL
     Indication: Anaesthesia
     Dosage: REMIFENTANIL VIATRIS (DURATION: 18 DAYS) (DOSAGE TEXT: NOT SPECIFIED)
     Route: 042
     Dates: start: 20240607, end: 20240625
  3. REMIFENTANIL [Suspect]
     Active Substance: REMIFENTANIL
     Dosage: REMIFENTANIL VIATRIS (DURATION: 1 DAY) (DOSAGE TEXT: NOT SPECIFIED)
     Route: 042
     Dates: start: 20240630, end: 20240701
  4. KETAMINE [Suspect]
     Active Substance: KETAMINE
     Indication: Anaesthesia
     Dosage: (DURATION: 3 DAYS) DOSAGE TEXT: NOT SPECIFIED
     Route: 042
     Dates: start: 20240610, end: 20240613
  5. MIDAZOLAM HYDROCHLORIDE [Suspect]
     Active Substance: MIDAZOLAM HYDROCHLORIDE
     Indication: Anaesthesia
     Dosage: (DURATION: 3 DAYS) DOSAGE TEXT: NOT SPECIFIED
     Route: 042
     Dates: start: 20240610, end: 20240613
  6. DIAZEPAM [Suspect]
     Active Substance: DIAZEPAM
     Indication: Anaesthesia
     Dosage: (DURATION: 2 DAYS) DOSAGE TEXT: NOT SPECIFIED
     Route: 042
     Dates: start: 20240621, end: 20240623
  7. DIAZEPAM [Suspect]
     Active Substance: DIAZEPAM
     Dosage: (DURATION: 1 DAY) DOSAGE TEXT: NOT SPECIFIED
     Route: 042
     Dates: start: 20240627, end: 20240628
  8. SEVOFLURANE [Suspect]
     Active Substance: SEVOFLURANE
     Indication: Anaesthesia
     Dosage: (DURATION: 8 DAYS) DOSAGE TEXT: NOT SPECIFIED
     Dates: start: 20240613, end: 20240621
  9. URAPIDIL HYDROCHLORIDE [Concomitant]
     Active Substance: URAPIDIL HYDROCHLORIDE
     Dosage: URAPIDIL STRAGEN 100 MG/20 ML, SOLUTION INJECTABLE
     Route: 065
  10. NICARDIPINE [Concomitant]
     Active Substance: NICARDIPINE
     Dosage: NICARDIPINE ARROW 10 MG/10 ML, SOLUTION INJECTABLE
     Route: 065
  11. UMULINE [Concomitant]
     Active Substance: INSULIN HUMAN
     Dosage: UNK
     Route: 065
  12. HEPARIN SODIUM [Concomitant]
     Active Substance: HEPARIN SODIUM
     Dosage: HEPARIN SODIUM PANPHARMA 5 000 UI/ML, SOLUTION INJECTABLE
     Route: 065
  13. ACETAMINOPHEN [Concomitant]
     Active Substance: ACETAMINOPHEN
     Dosage: PARACETAMOL B BRAUN 10 MG/ML, SOLUTION FOR INFUSION
     Route: 065
  14. ALBUTEROL [Concomitant]
     Active Substance: ALBUTEROL
     Dosage: SALBUTAMOL ARROW 5 MG/2.5 ML, SOLUTION FOR INHALATION BY NEBULIZER IN SINGLE-DOSE CONTAINER
     Route: 065
  15. IPRATROPIUM [Concomitant]
     Active Substance: IPRATROPIUM
     Dosage: IPRATROPIUM VIATRIS 0.5 MG/2 ML ADULTS, SOLUTION FOR INHALATION BY NEBULIZER IN SINGLE-DOSE CONTAINE
     Route: 065
  16. BUDESONIDE [Concomitant]
     Active Substance: BUDESONIDE
     Dosage: BUDESONIDE VIATRIS 0.50 MG/2 ML, SUSPENSION FOR INHALATION BY NEBULIZER IN SINGLE-DOSE CONTAINER
     Route: 065
  17. LANSOPRAZOLE [Concomitant]
     Active Substance: LANSOPRAZOLE
     Dosage: LANSOPRAZOLE VIATRIS
     Route: 065
  18. KARDEGIC [Concomitant]
     Active Substance: ASPIRIN DL-LYSINE
     Dosage: KARDEGIC 75 MG, POWDER FOR ORAL SOLUTION IN SACHET-DOSE
     Route: 065
  19. AMOXICILLIN [Concomitant]
     Active Substance: AMOXICILLIN
     Dosage: UNK
     Route: 065
  20. CLAVULANIC ACID [Concomitant]
     Active Substance: CLAVULANIC ACID
     Dosage: UNK
     Route: 065

REACTIONS (1)
  - Delayed recovery from anaesthesia [Recovered/Resolved]

NARRATIVE: CASE EVENT DATE: 20240623
